FAERS Safety Report 21386518 (Version 5)
Quarter: 2022Q4

REPORT INFORMATION
  Report Type: Report from Study
  Country: KR (occurrence: KR)
  Receive Date: 20220928
  Receipt Date: 20221115
  Transmission Date: 20230113
  Serious: Yes (Hospitalization, Other)
  Sender: FDA-Public Use
  Company Number: KR-GLAXOSMITHKLINE-KR2022GSK138239

PATIENT

DRUGS (24)
  1. FLUTICASONE FUROATE\UMECLIDINIUM BROMIDE\VILANTEROL TRIFENATATE [Suspect]
     Active Substance: FLUTICASONE FUROATE\UMECLIDINIUM BROMIDE\VILANTEROL TRIFENATATE
     Indication: Chronic obstructive pulmonary disease
     Dosage: UNK, QD
     Route: 055
     Dates: start: 20220113, end: 20220311
  2. FLUTICASONE FUROATE\UMECLIDINIUM BROMIDE\VILANTEROL TRIFENATATE [Suspect]
     Active Substance: FLUTICASONE FUROATE\UMECLIDINIUM BROMIDE\VILANTEROL TRIFENATATE
     Dosage: UNK, QD
     Route: 055
     Dates: start: 20220404
  3. FLUTICASONE FUROATE\UMECLIDINIUM BROMIDE\VILANTEROL TRIFENATATE [Suspect]
     Active Substance: FLUTICASONE FUROATE\UMECLIDINIUM BROMIDE\VILANTEROL TRIFENATATE
     Dosage: UNK, QD
     Route: 055
     Dates: start: 20220502
  4. DOXOFYLLINE [Concomitant]
     Active Substance: DOXOFYLLINE
     Indication: Chronic obstructive pulmonary disease
     Dosage: 400 MG, BID
     Route: 048
     Dates: start: 20200803
  5. PRANLUKAST [Concomitant]
     Active Substance: PRANLUKAST
     Indication: Chronic obstructive pulmonary disease
     Dosage: 2 DF, BID
     Route: 048
     Dates: start: 20200803
  6. ESODUO [Concomitant]
     Indication: Peptic ulcer
     Dosage: 1 DF, QD
     Route: 048
     Dates: start: 20220502
  7. URSODIOL [Concomitant]
     Active Substance: URSODIOL
     Indication: Dyspepsia
     Dosage: 1 DF, TID
     Route: 048
     Dates: start: 20220404, end: 20220502
  8. MAGNESIUM HYDROXIDE [Concomitant]
     Active Substance: MAGNESIUM HYDROXIDE
     Indication: Antacid therapy
     Dosage: 2 DF, TID
     Route: 048
     Dates: start: 20220404, end: 20220502
  9. QUETIAPINE FUMARATE [Concomitant]
     Active Substance: QUETIAPINE FUMARATE
     Indication: Psychiatric disorder prophylaxis
     Dosage: 12.5 MG, QD
     Route: 048
     Dates: start: 20220404, end: 20220502
  10. VALSARECT [Concomitant]
     Indication: Hypertension
     Dosage: 40 MG, QD
     Route: 048
     Dates: start: 20220222
  11. NORSPAN [Concomitant]
     Active Substance: BUPRENORPHINE
     Indication: Osteoarthritis
     Dosage: 10MCG/H
     Route: 050
     Dates: start: 20211124
  12. OMEPRAZOLE [Concomitant]
     Active Substance: OMEPRAZOLE
     Indication: Gastrooesophageal reflux disease
     Dosage: 20 MG, BID
     Route: 048
     Dates: start: 20200803
  13. RENEXIN [Concomitant]
     Indication: Thrombolysis
     Dosage: 1 DF, BID
     Route: 048
     Dates: start: 20201006
  14. CHOLINE ALFOSCERATE [Concomitant]
     Active Substance: CHOLINE ALFOSCERATE
     Indication: Dementia Alzheimer^s type
     Dosage: 1 DF, BID
     Route: 048
     Dates: start: 20170322
  15. DEXILANT [Concomitant]
     Active Substance: DEXLANSOPRAZOLE
     Indication: Peptic ulcer
     Dosage: 30 MG, QD
     Route: 048
     Dates: start: 20201006
  16. LIPINON [Concomitant]
     Indication: Arteriosclerosis
     Dosage: 10 MG, QD
     Route: 048
     Dates: start: 20151020, end: 2022
  17. ASPIRIN [Concomitant]
     Active Substance: ASPIRIN
     Indication: Thrombolysis
     Dosage: 100 MG, QD
     Route: 048
     Dates: start: 20160622, end: 2022
  18. AMINO ACIDS, SOURCE UNSPECIFIED [Concomitant]
     Active Substance: AMINO ACIDS, SOURCE UNSPECIFIED
     Indication: Protein total abnormal
     Dosage: 4.15 G PACK, TID
     Route: 048
     Dates: start: 20220504, end: 202206
  19. K-CAB [Concomitant]
     Indication: Gastrooesophageal reflux disease
     Dosage: 50 MG, QD
     Route: 048
     Dates: start: 20220111, end: 2022
  20. GLICLAZIDE [Concomitant]
     Active Substance: GLICLAZIDE
     Indication: Diabetes mellitus
     Dosage: 30 MG, QD
     Route: 048
     Dates: start: 20151215, end: 2022
  21. BENIDIPINE HYDROCHLORIDE [Concomitant]
     Active Substance: BENIDIPINE HYDROCHLORIDE
     Indication: Hypertension
     Dosage: 1 DF, BID
     Route: 048
     Dates: start: 20190715, end: 2022
  22. LIVALO V [Concomitant]
     Indication: Cardiovascular disorder
     Dosage: 1 DF, QD
     Route: 048
     Dates: start: 20180409, end: 2022
  23. TURANT [Concomitant]
     Indication: Chronic obstructive pulmonary disease
     Dosage: 200 MG, BID
     Route: 048
     Dates: start: 20220627
  24. LYRICA [Concomitant]
     Active Substance: PREGABALIN
     Indication: Nervous system disorder
     Dosage: 75 MG, BID
     Route: 048
     Dates: start: 20220722

REACTIONS (4)
  - Dysarthria [Recovered/Resolved]
  - Chronic kidney disease [Recovered/Resolved]
  - Pneumonia [Recovered/Resolved]
  - Pneumonia [Recovering/Resolving]

NARRATIVE: CASE EVENT DATE: 20220904
